FAERS Safety Report 8529447 (Version 3)
Quarter: 2013Q3

REPORT INFORMATION
  Report Type: Spontaneous
  Country: SE (occurrence: SE)
  Receive Date: 20120425
  Receipt Date: 20130910
  Transmission Date: 20140515
  Serious: Yes (Disabling, Congenital Anomaly, Other)
  Sender: FDA-Public Use
  Company Number: SE-ROCHE-1058371

PATIENT
  Age: 106 Day
  Sex: Female

DRUGS (2)
  1. IKTORIVIL [Suspect]
     Indication: EPILEPSY
     Route: 064
  2. ERGENYL [Suspect]
     Indication: EPILEPSY
     Route: 064

REACTIONS (8)
  - Maternal exposure during pregnancy [Unknown]
  - Congenital foot malformation [Not Recovered/Not Resolved]
  - Developmental delay [Not Recovered/Not Resolved]
  - Foetal exposure during pregnancy [Unknown]
  - Autism [Not Recovered/Not Resolved]
  - Lung disorder [Not Recovered/Not Resolved]
  - Exposure during breast feeding [Unknown]
  - Fine motor delay [Not Recovered/Not Resolved]
